FAERS Safety Report 14681438 (Version 1)
Quarter: 2018Q1

REPORT INFORMATION
  Report Type: Spontaneous
  Country: US (occurrence: PE)
  Receive Date: 20180326
  Receipt Date: 20180326
  Transmission Date: 20180509
  Serious: Yes (Hospitalization, Other)
  Sender: FDA-Public Use
  Company Number: US-SUNOVION-2018SUN001152

PATIENT
  Sex: Male

DRUGS (2)
  1. INDACATEROL AND GLYCOPYRROLATE [Suspect]
     Active Substance: GLYCOPYRROLATE\INDACATEROL MALEATE
     Dosage: REGIMEN #2; ULTIBRO BREEZHALER (INDACATEROL, GLYCOPYRRONIUM BROMIDE) UNKNOWN, 0.11\0.05 MG; QD
     Route: 055
     Dates: start: 20180312
  2. INDACATEROL AND GLYCOPYRROLATE [Suspect]
     Active Substance: GLYCOPYRROLATE\INDACATEROL MALEATE
     Indication: CHRONIC OBSTRUCTIVE PULMONARY DISEASE
     Dosage: REGIMEN #1; ULTIBRO BREEZHALER (INDACATEROL, GLYCOPYRRONIUM BROMIDE) UNKNOWN, 0.11\0.05 MG; QD
     Route: 055
     Dates: start: 201709

REACTIONS (2)
  - Discomfort [Unknown]
  - Pneumonia [Unknown]
